FAERS Safety Report 8572760-X (Version None)
Quarter: 2012Q3

REPORT INFORMATION
  Report Type: 
  Country: None (occurrence: None)
  Receive Date: 20120806
  Receipt Date: 20120802
  Transmission Date: 20120928
  Serious: Yes (Hospitalization)
  Sender: FDA-Public Use
  Company Number: US-ROCHE-1096588

PATIENT

DRUGS (2)
  1. NUTROPIN AQ [Suspect]
     Indication: PRODUCT USED FOR UNKNOWN INDICATION
     Dosage: NUTROPIN NUSPIN 10
     Route: 058
     Dates: start: 20100802, end: 20120201
  2. NUTROPIN AQ [Suspect]
     Route: 058
     Dates: start: 20120301

REACTIONS (1)
  - PHARYNGITIS [None]
